FAERS Safety Report 5673914-2 (Version None)
Quarter: 2008Q2

REPORT INFORMATION
  Report Type: 
  Country: None (occurrence: None)
  Receive Date: 20080226
  Receipt Date: 20080104
  Transmission Date: 20081010
  Serious: Yes (Hospitalization, Other)
  Sender: FDA-Public Use
  Company Number: US-JNJFOC-20071201781

PATIENT
  Sex: Female
  Weight: 66.6788 kg

DRUGS (16)
  1. DACOGEN [Suspect]
     Indication: MYELODYSPLASTIC SYNDROME
     Dosage: 20 MG, 2 IN 1 DAY, INTRAVENOUS
     Route: 042
     Dates: start: 20071029, end: 20071102
  2. DACOGEN [Suspect]
  3. LEVOTHYROXINE SODIUM [Concomitant]
  4. ATENOLOL [Concomitant]
  5. FOSAMAX [Concomitant]
  6. MIRALAX [Concomitant]
  7. ASA (ACETYLSALICYLIC ACID0 [Concomitant]
  8. CACO3 (CALCIUM CARBONATE) [Concomitant]
  9. GARLIC (GARLIC) [Concomitant]
  10. CRANBERRY EXTRACT (HERBAL PREPARATION) [Concomitant]
  11. ZINC (ZINC) [Concomitant]
  12. FISH OIL 9FISH OIL) [Concomitant]
  13. ALLOPURINOL [Concomitant]
  14. LASIX [Concomitant]
  15. POTASSIUM CHLORIDE [Concomitant]
  16. TOPROL-XL [Concomitant]

REACTIONS (2)
  - ESCHERICHIA BACTERAEMIA [None]
  - FEBRILE NEUTROPENIA [None]
